FAERS Safety Report 8537241-8 (Version None)
Quarter: 2012Q3

REPORT INFORMATION
  Report Type: 
  Country: None (occurrence: None)
  Receive Date: 20120725
  Receipt Date: 20120628
  Transmission Date: 20120928
  Serious: No
  Sender: FDA-Public Use
  Company Number: US-ASTRAZENECA-2012SE43788

PATIENT
  Age: 36 Year
  Sex: Male
  Weight: 122.5 kg

DRUGS (5)
  1. BUSPAR [Concomitant]
     Indication: ANXIETY
     Route: 048
  2. PRILOSEC [Suspect]
     Indication: GASTROOESOPHAGEAL REFLUX DISEASE
     Route: 048
  3. METOPROLOL SUCCINATE [Suspect]
     Indication: HYPERTENSION
     Route: 048
  4. LISINOPRIL [Suspect]
     Indication: HYPERTENSION
  5. BUSPAR [Concomitant]
     Indication: PANIC ATTACK
     Route: 048

REACTIONS (6)
  - ABDOMINAL PAIN UPPER [None]
  - DIZZINESS [None]
  - ANXIETY [None]
  - GASTROOESOPHAGEAL REFLUX DISEASE [None]
  - PANIC ATTACK [None]
  - DRUG INEFFECTIVE [None]
